FAERS Safety Report 5203918-5 (Version None)
Quarter: 2007Q1

REPORT INFORMATION
  Report Type: 
  Country: None (occurrence: None)
  Receive Date: 20070109
  Receipt Date: 20070109
  Transmission Date: 20070707
  Serious: Yes (Other)
  Sender: FDA-Public Use
  Company Number: None

PATIENT
  Age: 38 Year
  Sex: Female
  Weight: 76.6579 kg

DRUGS (1)
  1. MIRENA [Suspect]
     Indication: CONTRACEPTION
     Dates: start: 20050901, end: 20070104

REACTIONS (12)
  - ABDOMINAL DISTENSION [None]
  - ACNE [None]
  - ALOPECIA [None]
  - BACK PAIN [None]
  - DYSPAREUNIA [None]
  - HAEMORRHAGE [None]
  - IUCD COMPLICATION [None]
  - LIBIDO DECREASED [None]
  - MUSCULOSKELETAL PAIN [None]
  - OEDEMA PERIPHERAL [None]
  - THROMBOSIS [None]
  - WEIGHT INCREASED [None]
